FAERS Safety Report 10425004 (Version 1)
Quarter: 2014Q3

REPORT INFORMATION
  Report Type: Spontaneous
  Country: FR (occurrence: FR)
  Receive Date: 20140902
  Receipt Date: 20140902
  Transmission Date: 20150326
  Serious: Yes (Other)
  Sender: FDA-Public Use
  Company Number: FR-TEVA-505312ISR

PATIENT
  Age: 93 Year
  Sex: Female

DRUGS (6)
  1. DIFFU-K [Concomitant]
     Active Substance: POTASSIUM CHLORIDE
     Dosage: 2 DOSAGE FORMS DAILY;
  2. FUROSEMIDE TEVA [Suspect]
     Active Substance: FUROSEMIDE
     Indication: OEDEMA DUE TO CARDIAC DISEASE
     Dosage: 40 MILLIGRAM DAILY;
     Route: 048
     Dates: start: 20140816, end: 20140820
  3. KARDEGIC [Concomitant]
     Active Substance: ASPIRIN LYSINE
     Dosage: 160 MILLIGRAM DAILY;
  4. CEFUROXIME. [Concomitant]
     Active Substance: CEFUROXIME
     Dosage: 2 DOSAGE FORMS DAILY; 1 DF IN THE MORNING AND 1 IN THE NIGHT
     Dates: start: 20140816
  5. PREDNISONE. [Concomitant]
     Active Substance: PREDNISONE
     Dosage: 40 MILLIGRAM DAILY; 2 DF IN THE MORNING
     Dates: start: 20140816
  6. FUROSEMIDE TEVA [Suspect]
     Active Substance: FUROSEMIDE
     Indication: PULMONARY OEDEMA

REACTIONS (4)
  - Somnolence [Not Recovered/Not Resolved]
  - Feeling abnormal [Not Recovered/Not Resolved]
  - Lack of spontaneous speech [Not Recovered/Not Resolved]
  - Unresponsive to stimuli [Not Recovered/Not Resolved]

NARRATIVE: CASE EVENT DATE: 20140818
